FAERS Safety Report 18245204 (Version 1)
Quarter: 2020Q3

REPORT INFORMATION
  Report Type: Spontaneous
  Country: CN (occurrence: CN)
  Receive Date: 20200908
  Receipt Date: 20200908
  Transmission Date: 20201103
  Serious: Yes (Hospitalization)
  Sender: FDA-Public Use
  Company Number: CN-BAXTER-2020BAX018128

PATIENT
  Age: 7 Year
  Sex: Female
  Weight: 18 kg

DRUGS (19)
  1. VINCRISTINE SULFATE. [Suspect]
     Active Substance: VINCRISTINE SULFATE
     Dosage: DOSE RE?INTRODUCED, VINCRISTINE SULFATE + 0.9% NS
     Route: 042
  2. NUOXIN [Suspect]
     Active Substance: CISPLATIN
     Dosage: DOSE RE?INTRODUCED, CISPLATIN + 0.9% NS
     Route: 041
  3. 0.9% SODIUM CHLORIDE INJECTION [Suspect]
     Active Substance: SODIUM CHLORIDE
     Dosage: DOSE RE?INTRODUCED, 0.9% NS+ VINCRISTINE SULFATE
     Route: 042
  4. VINCRISTINE SULFATE. [Suspect]
     Active Substance: VINCRISTINE SULFATE
     Indication: MEDULLOBLASTOMA
     Dosage: VINCRISTINE SULFATE + 0.9% NS 20 ML, DAY 1
     Route: 042
     Dates: start: 20200811, end: 20200811
  5. 0.9% SODIUM CHLORIDE INJECTION [Suspect]
     Active Substance: SODIUM CHLORIDE
     Dosage: DOSE RE?INTRODUCED, 0.9% NS+ ENDOXAN
     Route: 041
  6. ONDANSETRON HYDROCHLORIDE. [Suspect]
     Active Substance: ONDANSETRON HYDROCHLORIDE
     Indication: PROPHYLAXIS OF NAUSEA AND VOMITING
     Dosage: ONDANSETRON + 0.9% NS 25ML
     Route: 042
     Dates: start: 20200811, end: 20200812
  7. MESNA. [Suspect]
     Active Substance: MESNA
     Indication: PROPHYLAXIS
     Route: 042
     Dates: start: 20200811, end: 20200812
  8. RECOMBINANT HUMAN GRANULOCYTE STIMULATING FACTOR [Concomitant]
     Indication: PROPHYLAXIS
     Route: 058
     Dates: start: 20200812, end: 20200814
  9. 0.9% SODIUM CHLORIDE INJECTION [Suspect]
     Active Substance: SODIUM CHLORIDE
     Dosage: DAY 1, 0.9% NS+ VINCRISTINE SULFATE 1.2MG
     Route: 042
     Dates: start: 20200811, end: 20200811
  10. 0.9% SODIUM CHLORIDE INJECTION [Suspect]
     Active Substance: SODIUM CHLORIDE
     Dosage: DOSE RE?INTRODUCED, 0.9% NS+ CISPLATIN
     Route: 041
  11. ENDOXAN [Suspect]
     Active Substance: CYCLOPHOSPHAMIDE
     Dosage: DOSE RE?INTRODUCED, ENDOXAN + 0.9% NS
     Route: 041
  12. 0.9% SODIUM CHLORIDE INJECTION [Suspect]
     Active Substance: SODIUM CHLORIDE
     Dosage: 0.9% NS + ONDANSETRON 3.9MG
     Route: 042
     Dates: start: 20200811, end: 20200812
  13. 0.9% SODIUM CHLORIDE INJECTION [Suspect]
     Active Substance: SODIUM CHLORIDE
     Dosage: DOSE RE?INTRODUCED, 0.9% NS+ ONDANSETRON
     Route: 042
  14. MESNA. [Suspect]
     Active Substance: MESNA
     Dosage: DOSE RE?INTRODUCED, MESNA
     Route: 042
  15. ENDOXAN [Suspect]
     Active Substance: CYCLOPHOSPHAMIDE
     Indication: MEDULLOBLASTOMA
     Dosage: DAY 1 TO DAY 2, ENDOXAN+ 0.9% NS 66 ML
     Route: 041
     Dates: start: 20200811, end: 20200812
  16. 0.9% SODIUM CHLORIDE INJECTION [Suspect]
     Active Substance: SODIUM CHLORIDE
     Indication: MEDICATION DILUTION
     Dosage: DAY 1 TO DAY 2, 0.9% NS+ ENDOXAN 770 MG
     Route: 041
     Dates: start: 20200811, end: 20200812
  17. 0.9% SODIUM CHLORIDE INJECTION [Suspect]
     Active Substance: SODIUM CHLORIDE
     Dosage: DAY 1, 0.9% NS+ CISPLATIN 154 MG
     Route: 041
     Dates: start: 20200811, end: 20200811
  18. ONDANSETRON HYDROCHLORIDE. [Suspect]
     Active Substance: ONDANSETRON HYDROCHLORIDE
     Dosage: DOSE RE?INTRODUCED, ONDANSETRON +0.9% NS
     Route: 042
  19. NUOXIN [Suspect]
     Active Substance: CISPLATIN
     Indication: MEDULLOBLASTOMA
     Dosage: DAY 1, CISPLATIN + 0.9% NS 154 ML
     Route: 041
     Dates: start: 20200811, end: 20200811

REACTIONS (1)
  - Pancytopenia [Recovering/Resolving]

NARRATIVE: CASE EVENT DATE: 20200816
